FAERS Safety Report 5200669-8 (Version None)
Quarter: 2006Q4

REPORT INFORMATION
  Report Type: 
  Country: None (occurrence: None)
  Receive Date: 20061016
  Receipt Date: 20060630
  Transmission Date: 20070319
  Serious: No
  Sender: FDA-Public Use
  Company Number: 2006SP002603

PATIENT
  Age: 37 Year
  Sex: Female

DRUGS (2)
  1. LUNESTA [Suspect]
     Indication: NARCOLEPSY
     Dosage: 3  MG; ORAL
     Route: 048
     Dates: start: 20060401, end: 20060605
  2. PROVIGIL [Concomitant]

REACTIONS (4)
  - HALLUCINATION [None]
  - HEADACHE [None]
  - MEMORY IMPAIRMENT [None]
  - RETROGRADE AMNESIA [None]
